FAERS Safety Report 6223293-7 (Version None)
Quarter: 2009Q2

REPORT INFORMATION
  Report Type: 
  Country: None (occurrence: None)
  Receive Date: 20090609
  Receipt Date: 20090604
  Transmission Date: 20091009
  Serious: Yes (Hospitalization)
  Sender: FDA-Public Use
  Company Number: GB-WYE-G03792709

PATIENT
  Age: 73 Year
  Sex: Female

DRUGS (12)
  1. TAZOCIN (PIPERACILLIN/TAZOBACTAM, UNSPEC) [Suspect]
     Indication: SEPSIS
     Dosage: 4.5 MG 3X PER 1 DAY INTRAVENOUS
     Route: 042
     Dates: start: 20090330, end: 20090331
  2. NEUPRO [Suspect]
     Indication: PARKINSON'S DISEASE
     Dosage: 2 MG 1X PER 1 DAY TRANSDERMAL
     Route: 062
     Dates: start: 20090331, end: 20090408
  3. ASPIRIN [Concomitant]
  4. CARBAMAZEPINE [Concomitant]
  5. DOMPERIDONE (DOMPERIDONE) [Concomitant]
  6. LANSOPRAZOLE [Concomitant]
  7. LETROZOLE [Concomitant]
  8. MADOPAR (BENSERAZIDE HYDROCHLORIDE/LEVODOPA) [Concomitant]
  9. METRONIDAZOLE (METRONIDAZOLE) [Concomitant]
  10. MIRTAZAPINE [Concomitant]
  11. ACETAMINOPHEN [Concomitant]
  12. SINEMET [Concomitant]

REACTIONS (5)
  - BLOOD ALBUMIN DECREASED [None]
  - LIP SWELLING [None]
  - OEDEMA PERIPHERAL [None]
  - SWELLING FACE [None]
  - SWOLLEN TONGUE [None]
